FAERS Safety Report 4758173-7 (Version None)
Quarter: 2005Q3

REPORT INFORMATION
  Report Type: 
  Country: None (occurrence: None)
  Receive Date: 20050829
  Receipt Date: 20050819
  Transmission Date: 20060218
  Serious: Yes (Other)
  Sender: FDA-Public Use
  Company Number: 2005-08-1450

PATIENT
  Age: 44 Year
  Sex: Male

DRUGS (1)
  1. RINDERON (BETAMETHASONE SODIUM PHOSPHATE)INJECTABE SOLUTION  ^LIKE CEL [Suspect]
     Dosage: 8 MG QD SUBCU-INJ

REACTIONS (9)
  - BRAIN MASS [None]
  - CEREBRAL INFARCTION [None]
  - DEPRESSED LEVEL OF CONSCIOUSNESS [None]
  - GRANULOMA [None]
  - HAEMODYNAMIC INSTABILITY [None]
  - HISTOPLASMOSIS [None]
  - HYDROCEPHALUS [None]
  - MYDRIASIS [None]
  - SARCOIDOSIS [None]
